FAERS Safety Report 7265966-3 (Version None)
Quarter: 2011Q1

REPORT INFORMATION
  Report Type: 
  Country: None (occurrence: None)
  Receive Date: 20110131
  Receipt Date: 20101111
  Transmission Date: 20110831
  Serious: Yes (Other)
  Sender: FDA-Public Use
  Company Number: GB-AMGEN-GBRCT2010005643

PATIENT
  Age: 68 Year
  Sex: Female
  Weight: 72 kg

DRUGS (2)
  1. METHOTREXATE [Concomitant]
     Dosage: UNK
     Dates: start: 20060307
  2. ETANERCEPT [Suspect]
     Dosage: UNK
     Dates: start: 20060621, end: 20060830

REACTIONS (1)
  - MYELOPROLIFERATIVE DISORDER [None]
